FAERS Safety Report 10261063 (Version 1)
Quarter: 2014Q2

REPORT INFORMATION
  Report Type: Spontaneous
  Country: US (occurrence: None)
  Receive Date: 20140623
  Receipt Date: 20140623
  Transmission Date: 20141212
  Serious: Yes (Other)
  Sender: FDA-Public Use
  Company Number: UNT-2014-002427

PATIENT
  Sex: Female

DRUGS (6)
  1. TYVASO (TREPROSTINIL SODIUM) INHALATION GAS, 0.6 MG/ML [Suspect]
     Indication: PULMONARY ARTERIAL HYPERTENSION
     Route: 055
     Dates: start: 20130806, end: 20140603
  2. TRACLEER (BOSENTAN) [Concomitant]
  3. ULORIC (FEBUXOSTAT) [Concomitant]
  4. ALLOPURINOL (ALLOPURINOL) [Concomitant]
  5. HUMALOG (INSULIN LISPRO) [Concomitant]
  6. LANTUS (INSULIN GLARGINE) [Concomitant]

REACTIONS (1)
  - Nasal congestion [None]
